FAERS Safety Report 15712924 (Version 2)
Quarter: 2018Q4

REPORT INFORMATION
  Report Type: Report from Study
  Country: LT (occurrence: LT)
  Receive Date: 20181212
  Receipt Date: 20181227
  Transmission Date: 20190205
  Serious: Yes (Hospitalization)
  Sender: FDA-Public Use
  Company Number: LT-KADMON PHARMACEUTICALS, LLC-KAD201812-000795

PATIENT
  Age: 44 Year
  Sex: Male

DRUGS (6)
  1. AMOXICILLIN W/CLAVULANIC ACID [Concomitant]
     Active Substance: AMOXICILLIN\CLAVULANIC ACID
     Dosage: 625 MG
     Route: 048
  2. RIBAVIRIN. [Suspect]
     Active Substance: RIBAVIRIN
     Indication: CHRONIC HEPATITIS C
     Dosage: 400 MG IN THE MORNING AND 600 MG IN THE EVENING
  3. PEGINTERFERON ALFA 2A [Suspect]
     Active Substance: PEGINTERFERON ALFA-2A
     Indication: CHRONIC HEPATITIS C
     Dosage: 180 MCG/WEEK
     Route: 058
  4. CIPROFLOXACIN. [Concomitant]
     Active Substance: CIPROFLOXACIN
     Dosage: 200 MG
  5. CEFTRIAXONE. [Concomitant]
     Active Substance: CEFTRIAXONE
     Dosage: 1 G
  6. RIBAVIRIN. [Suspect]
     Active Substance: RIBAVIRIN
     Dosage: DRUG DISCONTINUED

REACTIONS (1)
  - Organising pneumonia [Recovered/Resolved]
